FAERS Safety Report 5577119-5 (Version None)
Quarter: 2007Q4

REPORT INFORMATION
  Report Type: 
  Country: None (occurrence: None)
  Receive Date: 20071130
  Receipt Date: 20070912
  Transmission Date: 20080405
  Serious: No
  Sender: FDA-Public Use
  Company Number: US200709002662

PATIENT
  Age: 64 Year
  Sex: Female
  Weight: 66.2 kg

DRUGS (4)
  1. BYETTA [Suspect]
     Indication: TYPE 2 DIABETES MELLITUS
     Dosage: 5 UG, 2/D, 10 UG SUBCUTANEOUS
     Route: 058
     Dates: start: 20070718, end: 20070816
  2. BYETTA [Suspect]
     Indication: TYPE 2 DIABETES MELLITUS
     Dosage: 5 UG, 2/D, 10 UG SUBCUTANEOUS
     Route: 058
     Dates: start: 20070817
  3. ASPIRIN [Concomitant]
  4. PRILOSEC [Concomitant]

REACTIONS (8)
  - ANOREXIA [None]
  - BLOOD GLUCOSE DECREASED [None]
  - CONFUSIONAL STATE [None]
  - DYSPEPSIA [None]
  - FATIGUE [None]
  - INJECTION SITE BRUISING [None]
  - LETHARGY [None]
  - WEIGHT DECREASED [None]
